FAERS Safety Report 9146242 (Version 4)
Quarter: 2013Q1

REPORT INFORMATION
  Report Type: Spontaneous
  Country: US (occurrence: US)
  Receive Date: 20130307
  Receipt Date: 20130325
  Transmission Date: 20140127
  Serious: Yes (Other)
  Sender: FDA-Public Use
  Company Number: US-JNJFOC-20130217181

PATIENT
  Age: 42 Year
  Sex: Male
  Weight: 88.45 kg

DRUGS (2)
  1. EXTRA STRENGTH TYLENOL [Suspect]
     Indication: PAIN
     Dosage: 50 OR MORE 500MG PER DAY, ABOUT 5 A TIME EVERY HOUR TO 90 MINUTES
     Route: 048
     Dates: start: 2012
  2. EXTRA STRENGTH TYLENOL [Suspect]
     Indication: PAIN
     Route: 048

REACTIONS (2)
  - Intentional overdose [Not Recovered/Not Resolved]
  - Liver function test abnormal [Unknown]
